FAERS Safety Report 4433086-9 (Version None)
Quarter: 2004Q3

REPORT INFORMATION
  Report Type: 
  Country: None (occurrence: None)
  Receive Date: 20040823
  Receipt Date: 20040715
  Transmission Date: 20050211
  Serious: Yes (Other)
  Sender: FDA-Public Use
  Company Number: 2004-07-0943

PATIENT
  Age: 83 Year
  Sex: Male
  Weight: 72.1219 kg

DRUGS (1)
  1. CLARITIN HIVES RELIEF [Suspect]
     Dosage: ^OFF AND ON^ ORAL
     Route: 048
     Dates: start: 20040710

REACTIONS (2)
  - FORMICATION [None]
  - HALLUCINATION [None]
